FAERS Safety Report 18058802 (Version 1)
Quarter: 2020Q3

REPORT INFORMATION
  Report Type: Spontaneous
  Country: US (occurrence: US)
  Receive Date: 20200723
  Receipt Date: 20200723
  Transmission Date: 20201103
  Serious: No
  Sender: FDA-Public Use
  Company Number: US-KAMADA LIMITED-2019US008210

PATIENT

DRUGS (1)
  1. GLASSIA [Suspect]
     Active Substance: .ALPHA.1-PROTEINASE INHIBITOR HUMAN
     Indication: ALPHA-1 ANTITRYPSIN DEFICIENCY
     Dosage: 4464 MG (+/? 15%), QWK; 6 MONTHS OF GLASSIA THERAPY
     Route: 042

REACTIONS (1)
  - Fatigue [Recovered/Resolved]
